FAERS Safety Report 15581749 (Version 2)
Quarter: 2018Q4

REPORT INFORMATION
  Report Type: Spontaneous
  Country: US (occurrence: US)
  Receive Date: 20181105
  Receipt Date: 20181124
  Transmission Date: 20190205
  Serious: Yes (Death, Hospitalization, Other)
  Sender: FDA-Public Use
  Company Number: US-ROCHE-2206777

PATIENT
  Age: 56 Year
  Sex: Female

DRUGS (7)
  1. OCREVUS [Suspect]
     Active Substance: OCRELIZUMAB
     Indication: RELAPSING-REMITTING MULTIPLE SCLEROSIS
     Dosage: 1ST OCREVUS DOSE
     Route: 065
     Dates: start: 20180130
  2. TIZANIDINE. [Concomitant]
     Active Substance: TIZANIDINE
  3. OCREVUS [Suspect]
     Active Substance: OCRELIZUMAB
     Dosage: 6 MONTH OCREVUS DOSE
     Route: 065
     Dates: start: 20180731
  4. OCREVUS [Suspect]
     Active Substance: OCRELIZUMAB
     Dosage: 2ND OCREVUS DOSE
     Route: 065
     Dates: start: 20180213
  5. NEURONTIN [Concomitant]
     Active Substance: GABAPENTIN
  6. TOPAMAX [Concomitant]
     Active Substance: TOPIRAMATE
  7. KEPPRA [Concomitant]
     Active Substance: LEVETIRACETAM

REACTIONS (2)
  - Pancreatic carcinoma metastatic [Fatal]
  - Metastases to liver [Unknown]

NARRATIVE: CASE EVENT DATE: 201809
